FAERS Safety Report 7006473-2 (Version None)
Quarter: 2010Q3

REPORT INFORMATION
  Report Type: 
  Country: None (occurrence: None)
  Receive Date: 20100910
  Receipt Date: 20090602
  Transmission Date: 20110219
  Serious: Yes (Hospitalization)
  Sender: FDA-Public Use
  Company Number: 2009SP012065

PATIENT
  Age: 9 Year
  Sex: Female

DRUGS (6)
  1. POSACONAZOLE [Suspect]
     Indication: ANTIFUNGAL PROPHYLAXIS
     Dosage: 50 MG;TID;PO
     Route: 048
     Dates: start: 20070610, end: 20070701
  2. VINCRISTINE [Suspect]
     Dosage: 1.8 MG;ONCE;IV, 1.8 MG; ONCE IV
     Route: 042
     Dates: start: 20070615, end: 20070615
  3. VINCRISTINE [Suspect]
     Dosage: 1.8 MG;ONCE;IV, 1.8 MG; ONCE IV
     Route: 042
     Dates: start: 20070620, end: 20070620
  4. METHOTREXATE [Concomitant]
  5. CYTARABINE [Concomitant]
  6. PREDNISONE [Concomitant]

REACTIONS (14)
  - ABDOMINAL PAIN [None]
  - ACUTE LYMPHOCYTIC LEUKAEMIA [None]
  - BRAIN OEDEMA [None]
  - CONSTIPATION [None]
  - CONVULSION [None]
  - DRUG INTERACTION [None]
  - ENCEPHALOPATHY [None]
  - FUSARIUM INFECTION [None]
  - HYPOKALAEMIA [None]
  - HYPONATRAEMIA [None]
  - LEUKAEMIA RECURRENT [None]
  - NEUROPATHY PERIPHERAL [None]
  - NEUROTOXICITY [None]
  - NEUTROPENIA [None]
